FAERS Safety Report 4684412-7 (Version None)
Quarter: 2005Q2

REPORT INFORMATION
  Report Type: 
  Country: None (occurrence: None)
  Receive Date: 20050531
  Receipt Date: 20041022
  Transmission Date: 20051028
  Serious: Yes (Other)
  Sender: FDA-Public Use
  Company Number: USA041082064

PATIENT
  Age: 40 Year
  Sex: Female

DRUGS (1)
  1. ZYPREXA [Suspect]
     Dosage: 10 MG

REACTIONS (1)
  - CONVULSION [None]
